FAERS Safety Report 19923559 (Version 1)
Quarter: 2021Q4

REPORT INFORMATION
  Report Type: Spontaneous
  Country: US (occurrence: US)
  Receive Date: 20211005
  Receipt Date: 20211005
  Transmission Date: 20220303
  Serious: No
  Sender: FDA-Public Use
  Company Number: None

PATIENT
  Age: 69 Year
  Sex: Male
  Weight: 62.6 kg

DRUGS (1)
  1. SUGAMMADEX [Suspect]
     Active Substance: SUGAMMADEX
     Indication: Surgery
     Route: 042
     Dates: start: 20210218, end: 20210218

REACTIONS (6)
  - Hypotension [None]
  - Mean arterial pressure decreased [None]
  - Therapy non-responder [None]
  - Anaphylactic reaction [None]
  - Mast cell degranulation present [None]
  - Hypotension [None]

NARRATIVE: CASE EVENT DATE: 20210218
